FAERS Safety Report 11449951 (Version 1)
Quarter: 2015Q3

REPORT INFORMATION
  Report Type: Spontaneous
  Country: US (occurrence: US)
  Receive Date: 20150903
  Receipt Date: 20150903
  Transmission Date: 20151125
  Serious: No
  Sender: FDA-Public Use
  Company Number: US-ROCHE-1043140

PATIENT
  Sex: Female

DRUGS (4)
  1. VICTRELIS [Suspect]
     Active Substance: BOCEPREVIR
     Indication: HEPATITIS C
     Route: 065
     Dates: start: 20120212
  2. PROCRIT [Concomitant]
     Active Substance: ERYTHROPOIETIN
  3. RIBASPHERE [Suspect]
     Active Substance: RIBAVIRIN
     Indication: HEPATITIS C
     Route: 065
     Dates: start: 20120115
  4. PEGASYS [Suspect]
     Active Substance: PEGINTERFERON ALFA-2A
     Indication: HEPATITIS C
     Route: 065
     Dates: start: 20120115

REACTIONS (4)
  - Haemoglobin decreased [Unknown]
  - Dyspnoea exertional [Unknown]
  - Nausea [Unknown]
  - Fatigue [Not Recovered/Not Resolved]
